FAERS Safety Report 19913105 (Version 1)
Quarter: 2021Q4

REPORT INFORMATION
  Report Type: Spontaneous
  Country: RU (occurrence: RU)
  Receive Date: 20211004
  Receipt Date: 20211004
  Transmission Date: 20220303
  Serious: Yes (Other)
  Sender: FDA-Public Use
  Company Number: RU-NOVARTISPH-NVSC2021RU220691

PATIENT
  Age: 57 Year
  Sex: Female
  Weight: 83 kg

DRUGS (1)
  1. TRILEPTAL [Suspect]
     Active Substance: OXCARBAZEPINE
     Indication: Epilepsy
     Dosage: 600 MG, QD
     Route: 048
     Dates: start: 20210330, end: 20210720

REACTIONS (2)
  - Cough [Recovering/Resolving]
  - Drug ineffective [Recovering/Resolving]
